FAERS Safety Report 25815496 (Version 1)
Quarter: 2025Q3

REPORT INFORMATION
  Report Type: Spontaneous
  Country: US (occurrence: US)
  Receive Date: 20250918
  Receipt Date: 20250918
  Transmission Date: 20251020
  Serious: Yes (Other)
  Sender: UCB
  Company Number: US-UCBSA-2025056775

PATIENT
  Age: 76 Year
  Sex: Male

DRUGS (1)
  1. KEPPRA [Suspect]
     Active Substance: LEVETIRACETAM
     Indication: Product used for unknown indication

REACTIONS (2)
  - Epilepsy [Unknown]
  - Inability to afford medication [Unknown]

NARRATIVE: CASE EVENT DATE: 20250813
